FAERS Safety Report 9848219 (Version 1)
Quarter: 2014Q1

REPORT INFORMATION
  Report Type: Spontaneous
  Country: US (occurrence: None)
  Receive Date: 20140117
  Receipt Date: 20140117
  Transmission Date: 20141002
  Serious: Yes (Death)
  Sender: FDA-Public Use
  Company Number: B0958473A

PATIENT
  Age: 29 Year
  Sex: Male

DRUGS (4)
  1. PAROXETINE HYDROCHLORIDE [Suspect]
     Route: 048
  2. ETHYLENE GLYCOL [Suspect]
     Route: 048
  3. DOXEPIN (DOXEPIN) (DOXEPIN) [Suspect]
  4. HYDROXYZINE (HYDROXYZINE) [Suspect]
     Route: 048

REACTIONS (1)
  - Completed suicide [None]
